FAERS Safety Report 8834233 (Version 5)
Quarter: 2014Q2

REPORT INFORMATION
  Report Type: Spontaneous
  Country: US (occurrence: US)
  Receive Date: 20121010
  Receipt Date: 20140407
  Transmission Date: 20141212
  Serious: No
  Sender: FDA-Public Use
  Company Number: US-009507513-1210USA003981

PATIENT
  Sex: Male

DRUGS (2)
  1. PROPECIA [Suspect]
     Indication: ANDROGENETIC ALOPECIA
     Dosage: 1 MG, QD
     Route: 048
     Dates: start: 19980617, end: 201212
  2. FINASTERIDE [Suspect]
     Dosage: 1 MG, QD
     Route: 048

REACTIONS (25)
  - Benign prostatic hyperplasia [Unknown]
  - Cognitive disorder [Not Recovered/Not Resolved]
  - Onychalgia [Unknown]
  - Foot deformity [Unknown]
  - Pain [Unknown]
  - Anxiety [Unknown]
  - Vision blurred [Unknown]
  - Phimosis [Unknown]
  - VIIth nerve paralysis [Unknown]
  - Umbilical hernia [Unknown]
  - Blood glucose increased [Unknown]
  - Erectile dysfunction [Unknown]
  - Sexual dysfunction [Not Recovered/Not Resolved]
  - Depression [Not Recovered/Not Resolved]
  - Blood cholesterol increased [Unknown]
  - Adverse drug reaction [Unknown]
  - Nausea [Unknown]
  - Increased appetite [Unknown]
  - Increased appetite [Unknown]
  - Nausea [Unknown]
  - Lipids increased [Unknown]
  - Metabolic syndrome [Unknown]
  - Type 2 diabetes mellitus [Unknown]
  - Pollakiuria [Unknown]
  - Weight increased [Unknown]
